FAERS Safety Report 10950644 (Version 1)
Quarter: 2015Q1

REPORT INFORMATION
  Report Type: Spontaneous
  Country: US (occurrence: None)
  Receive Date: 20150323
  Receipt Date: 20150323
  Transmission Date: 20150721
  Serious: Yes (Life-Threatening, Disabling, Other)
  Sender: FDA-Public Use
  Company Number: None

PATIENT
  Age: 52 Year
  Sex: Female
  Weight: 52.16 kg

DRUGS (15)
  1. AUBAGIO [Suspect]
     Active Substance: TERIFLUNOMIDE
     Indication: MULTIPLE SCLEROSIS
     Dosage: 1
     Route: 048
     Dates: start: 20141201, end: 20150308
  2. CLONIDINE. [Concomitant]
     Active Substance: CLONIDINE
  3. OMPERALZOLE [Concomitant]
  4. ANUSOL [Concomitant]
  5. DELZICOL [Concomitant]
     Active Substance: MESALAMINE
  6. CARAFATE [Concomitant]
     Active Substance: SUCRALFATE
  7. VITAMIN E [Concomitant]
     Active Substance: .ALPHA.-TOCOPHEROL
  8. LISINOPRIL. [Concomitant]
     Active Substance: LISINOPRIL
  9. PLAQUENIL [Concomitant]
     Active Substance: HYDROXYCHLOROQUINE SULFATE
  10. ENTECORT [Concomitant]
  11. PROLIA [Concomitant]
     Active Substance: DENOSUMAB
  12. ZOFRAN [Concomitant]
     Active Substance: ONDANSETRON HYDROCHLORIDE
  13. VITAMIN D [Concomitant]
     Active Substance: CHOLECALCIFEROL
  14. ATENOLOL. [Concomitant]
     Active Substance: ATENOLOL
  15. ZOLPIEDEM [Concomitant]

REACTIONS (3)
  - Hypertension [None]
  - Gastrointestinal disorder [None]
  - Hepatic pain [None]

NARRATIVE: CASE EVENT DATE: 20150321
